FAERS Safety Report 9489615 (Version 2)
Quarter: 2013Q4

REPORT INFORMATION
  Report Type: Spontaneous
  Country: IT (occurrence: IT)
  Receive Date: 20130829
  Receipt Date: 20131021
  Transmission Date: 20140711
  Serious: Yes (Hospitalization)
  Sender: FDA-Public Use
  Company Number: IT-WATSON-2013-15267

PATIENT
  Age: 27 Year
  Sex: Male

DRUGS (4)
  1. QUETIAPINE (UNKNOWN) [Suspect]
     Indication: INTENTIONAL SELF-INJURY
     Dosage: 2000 MG, SINGLE
     Route: 048
     Dates: start: 20130808, end: 20130808
  2. DEPAKIN CHRONO [Suspect]
     Indication: INTENTIONAL SELF-INJURY
     Dosage: 500 MG, DOSAGE(S)=8 INTERVAL= 1 TOTAL(S)
     Route: 048
     Dates: start: 20130808, end: 20130808
  3. FLUNOX [Suspect]
     Indication: INTENTIONAL SELF-INJURY
     Dosage: 30 MG, DOSAGE(S)=10 INTERVAL= 1 TOTAL(S)
     Route: 048
     Dates: start: 20130808, end: 20130808
  4. ALCOHOL [Suspect]
     Indication: PRODUCT USED FOR UNKNOWN INDICATION
     Dosage: 1 DF, SINGLE
     Route: 065
     Dates: start: 20130808, end: 20130808

REACTIONS (4)
  - Sopor [Recovering/Resolving]
  - Facial bones fracture [Recovering/Resolving]
  - Speech disorder [Recovering/Resolving]
  - Intentional self-injury [Recovering/Resolving]
